FAERS Safety Report 18525043 (Version 1)
Quarter: 2020Q4

REPORT INFORMATION
  Report Type: Spontaneous
  Country: GB (occurrence: GB)
  Receive Date: 20201119
  Receipt Date: 20201119
  Transmission Date: 20210114
  Serious: Yes (Other)
  Sender: FDA-Public Use
  Company Number: GB-PURDUE-USA-2020-0178075

PATIENT
  Sex: Male

DRUGS (1)
  1. MST CONTINUS [Suspect]
     Active Substance: MORPHINE SULFATE
     Indication: PRODUCT USED FOR UNKNOWN INDICATION
     Dosage: UNK
     Route: 065

REACTIONS (7)
  - Dysphemia [Unknown]
  - Abnormal dreams [Unknown]
  - Depressed mood [Unknown]
  - Sneezing [Unknown]
  - Myocardial infarction [Unknown]
  - Rhinorrhoea [Unknown]
  - Therapeutic product effect incomplete [Unknown]
